FAERS Safety Report 18752270 (Version 1)
Quarter: 2021Q1

REPORT INFORMATION
  Report Type: Spontaneous
  Country: US (occurrence: US)
  Receive Date: 20210118
  Receipt Date: 20210118
  Transmission Date: 20210419
  Serious: No
  Sender: FDA-Public Use
  Company Number: US-FOUNDATIONCONSUMERHC-2020-US-022949

PATIENT
  Age: 21 Year
  Sex: Female
  Weight: 61.24 kg

DRUGS (2)
  1. TAKE ACTION [Suspect]
     Active Substance: LEVONORGESTREL
     Indication: POST COITAL CONTRACEPTION
     Dosage: 1.5MG X 4 OR 5 DOSES
     Route: 048
     Dates: end: 20201102
  2. SMOKES MARIJUANA [Concomitant]

REACTIONS (9)
  - Pelvic discomfort [Not Recovered/Not Resolved]
  - Menstruation irregular [Unknown]
  - Intentional product misuse [Recovered/Resolved]
  - Menstrual disorder [Unknown]
  - Inappropriate schedule of product administration [Recovered/Resolved]
  - Abdominal distension [Not Recovered/Not Resolved]
  - Breast tenderness [Not Recovered/Not Resolved]
  - Cervical discharge [Unknown]
  - Back pain [Recovered/Resolved]

NARRATIVE: CASE EVENT DATE: 20201102
